FAERS Safety Report 24181555 (Version 1)
Quarter: 2024Q3

REPORT INFORMATION
  Report Type: Report from Study
  Country: TW (occurrence: None)
  Receive Date: 20240807
  Receipt Date: 20240807
  Transmission Date: 20241017
  Serious: Yes (Hospitalization, Other)
  Sender: ASTRAZENECA
  Company Number: 2020SE38784

PATIENT
  Age: 52 Year
  Sex: Female

DRUGS (2)
  1. FASLODEX [Suspect]
     Active Substance: FULVESTRANT
     Indication: Breast cancer female
     Dosage: 500 MG AS TWO 5 ML INJECTIONS, ONE IN EACH BUTTOCK, ON DAYS 1, 15, 29 AND ONCE MONTHLY THEREAFTER
     Route: 030
     Dates: start: 20191205
  2. FASLODEX [Suspect]
     Active Substance: FULVESTRANT
     Indication: Breast cancer female
     Dosage: 500 MG AS TWO 5 ML INJECTIONS, ONE IN EACH BUTTOCK, ON DAYS 1, 15, 29 AND ONCE MONTHLY THEREAFTER
     Route: 030
     Dates: start: 20200102

REACTIONS (1)
  - Respiratory failure [Unknown]

NARRATIVE: CASE EVENT DATE: 20200102
